FAERS Safety Report 8820117 (Version 1)
Quarter: 2012Q4

REPORT INFORMATION
  Report Type: 
  Country: AU (occurrence: AU)
  Receive Date: 20121001
  Receipt Date: 20121001
  Transmission Date: 20130627
  Serious: Yes (Other)
  Sender: FDA-Public Use
  Company Number: PHHY2012AU084098

PATIENT
  Age: 58 Year
  Sex: Female

DRUGS (1)
  1. WARFARIN [Suspect]

REACTIONS (2)
  - Vascular pseudoaneurysm [Recovered/Resolved]
  - Swelling [Recovered/Resolved]
